FAERS Safety Report 15241233 (Version 1)
Quarter: 2018Q3

REPORT INFORMATION
  Report Type: Spontaneous
  Country: US (occurrence: US)
  Receive Date: 20180711
  Receipt Date: 20180711
  Transmission Date: 20181010
  Serious: No
  Sender: FDA-Public Use
  Company Number: None

PATIENT
  Sex: Female
  Weight: 55.79 kg

DRUGS (7)
  1. OTEZLA [Suspect]
     Active Substance: APREMILAST
     Indication: CELLULITIS
     Route: 048
     Dates: start: 201711
  2. OTEZLA [Suspect]
     Active Substance: APREMILAST
     Indication: ARTHRALGIA
  3. OTEZLA [Suspect]
     Active Substance: APREMILAST
     Indication: DRUG THERAPY
  4. OTEZLA [Suspect]
     Active Substance: APREMILAST
     Indication: PSORIASIS
  5. OTEZLA [Suspect]
     Active Substance: APREMILAST
     Indication: INTERVERTEBRAL DISC DEGENERATION
  6. OTEZLA [Suspect]
     Active Substance: APREMILAST
     Indication: PSORIATIC ARTHROPATHY
  7. OTEZLA [Suspect]
     Active Substance: APREMILAST
     Indication: FATIGUE

REACTIONS (2)
  - Lower limb fracture [None]
  - Fall [None]
